FAERS Safety Report 6184626-3 (Version None)
Quarter: 2009Q2

REPORT INFORMATION
  Report Type: 
  Country: None (occurrence: None)
  Receive Date: 20090508
  Receipt Date: 20090428
  Transmission Date: 20091009
  Serious: Yes (Hospitalization)
  Sender: FDA-Public Use
  Company Number: CA-JNJFOC-20071204915

PATIENT
  Sex: Male
  Weight: 23 kg

DRUGS (10)
  1. INFLIXIMAB [Suspect]
     Route: 042
  2. INFLIXIMAB [Suspect]
     Route: 042
  3. INFLIXIMAB [Suspect]
     Indication: COLITIS ULCERATIVE
     Route: 042
  4. STRATTERA [Concomitant]
     Route: 048
  5. PALAFER [Concomitant]
     Route: 048
  6. SULFASALAZINE [Concomitant]
     Indication: COLITIS ULCERATIVE
     Route: 048
  7. IMURAN [Concomitant]
     Indication: COLITIS ULCERATIVE
     Route: 048
  8. PREDNISONE [Concomitant]
     Indication: COLITIS ULCERATIVE
     Route: 048
  9. VENTOLIN [Concomitant]
  10. FLOVENT [Concomitant]

REACTIONS (1)
  - COLITIS ULCERATIVE [None]
